FAERS Safety Report 18321762 (Version 1)
Quarter: 2020Q3

REPORT INFORMATION
  Report Type: Spontaneous
  Country: HU (occurrence: HU)
  Receive Date: 20200929
  Receipt Date: 20200929
  Transmission Date: 20201103
  Serious: Yes (Hospitalization, Other)
  Sender: FDA-Public Use
  Company Number: HU-LUPIN PHARMACEUTICALS INC.-2020-06569

PATIENT
  Age: 47 Year
  Sex: Female

DRUGS (7)
  1. FUROSEMIDE. [Suspect]
     Active Substance: FUROSEMIDE
     Indication: HYPERKALAEMIA
     Dosage: UNK
     Route: 065
  2. POTASSIUM CHLORIDE. [Suspect]
     Active Substance: POTASSIUM CHLORIDE
     Indication: PRODUCT USED FOR UNKNOWN INDICATION
     Dosage: 50 DOSAGE FORM, SELF ADMINISTERING 50 POTASSIUM CHLORIDE TABLETS IN A SUICIDE ATTEMPT, TABLET
     Route: 065
  3. CALCIUM ACETATE. [Suspect]
     Active Substance: CALCIUM ACETATE
     Indication: HYPERKALAEMIA
     Dosage: UNK
     Route: 065
  4. GLUCOSE [Suspect]
     Active Substance: DEXTROSE
     Indication: HYPERKALAEMIA
     Dosage: UNK
     Route: 065
  5. POLYSTYRENE SULFONATE SODIUM [Suspect]
     Active Substance: SODIUM POLYSTYRENE SULFONATE
     Indication: HYPERKALAEMIA
     Dosage: UNK
     Route: 065
  6. INSULIN [Suspect]
     Active Substance: INSULIN NOS
     Indication: HYPERKALAEMIA
     Dosage: UNK
     Route: 065
  7. SODIUM BICARBONATE. [Suspect]
     Active Substance: SODIUM BICARBONATE
     Indication: HYPERKALAEMIA
     Dosage: UNK
     Route: 065

REACTIONS (7)
  - Hyperkalaemia [Recovering/Resolving]
  - Intentional overdose [Unknown]
  - Bezoar [Recovering/Resolving]
  - Toxicity to various agents [Unknown]
  - Off label use [Unknown]
  - Suicide attempt [Recovering/Resolving]
  - Drug ineffective [Unknown]
